FAERS Safety Report 18556767 (Version 4)
Quarter: 2021Q1

REPORT INFORMATION
  Report Type: Report from Study
  Country: DO (occurrence: DO)
  Receive Date: 20201128
  Receipt Date: 20210217
  Transmission Date: 20210419
  Serious: No
  Sender: FDA-Public Use
  Company Number: NVSC2020DO314477

PATIENT
  Age: 53 Year
  Sex: Female
  Weight: 74.83 kg

DRUGS (4)
  1. GILENYA [Suspect]
     Active Substance: FINGOLIMOD HYDROCHLORIDE
     Indication: RELAPSING-REMITTING MULTIPLE SCLEROSIS
     Dosage: 0.5 MG, QD
     Route: 048
     Dates: start: 20201120
  2. CLOPIDOGREL [Concomitant]
     Active Substance: CLOPIDOGREL BISULFATE
     Indication: BLOOD CHOLESTEROL INCREASED
     Dosage: 75 MG, QD
     Route: 065
     Dates: start: 2018
  3. ROSUVASTATIN. [Concomitant]
     Active Substance: ROSUVASTATIN
     Indication: BLOOD CHOLESTEROL INCREASED
     Dosage: 20 MG, QD
     Route: 065
     Dates: start: 2018
  4. PREGABALIN. [Concomitant]
     Active Substance: PREGABALIN
     Indication: PAIN
     Dosage: 300 MG
     Route: 065
     Dates: start: 2012

REACTIONS (14)
  - Spinal flattening [Unknown]
  - Heart rate decreased [Recovered/Resolved]
  - Fatigue [Recovering/Resolving]
  - Arthralgia [Recovering/Resolving]
  - Gait disturbance [Unknown]
  - Spinal deformity [Unknown]
  - Dysgeusia [Unknown]
  - Blood pressure decreased [Unknown]
  - Visual impairment [Unknown]
  - Dysstasia [Unknown]
  - Tooth injury [Unknown]
  - Infection [Unknown]
  - Spinal pain [Unknown]
  - Asthenopia [Unknown]

NARRATIVE: CASE EVENT DATE: 20201120
